FAERS Safety Report 25862763 (Version 1)
Quarter: 2025Q3

REPORT INFORMATION
  Report Type: Spontaneous
  Country: EU (occurrence: EU)
  Receive Date: 20250930
  Receipt Date: 20250930
  Transmission Date: 20251020
  Serious: Yes (Other)
  Sender: ABBVIE
  Company Number: None

PATIENT
  Age: 83 Year
  Sex: Female
  Weight: 70 kg

DRUGS (9)
  1. IMBRUVICA [Suspect]
     Active Substance: IBRUTINIB
     Indication: Splenic marginal zone lymphoma
     Dosage: STARTED AT 560MG THEN REDUCED TO 140MG/DAY DUE TO OPHTHALMOLOGICAL PROBLEMS SUCH AS BLURRED VISION
     Route: 048
     Dates: start: 202201, end: 202303
  2. ATENOLOL [Concomitant]
     Active Substance: ATENOLOL
     Indication: Product used for unknown indication
  3. CHLORAMBUCIL [Suspect]
     Active Substance: CHLORAMBUCIL
     Indication: Marginal zone lymphoma
     Route: 065
     Dates: start: 20230605, end: 20231023
  4. CHLORAMBUCIL [Suspect]
     Active Substance: CHLORAMBUCIL
     Indication: Marginal zone lymphoma
     Route: 065
     Dates: start: 2014, end: 2016
  5. ALDACTAZINE [Concomitant]
     Active Substance: ALTHIAZIDE\SPIRONOLACTONE
     Indication: Product used for unknown indication
  6. ESCITALOPRAM [Concomitant]
     Active Substance: ESCITALOPRAM OXALATE
     Indication: Product used for unknown indication
  7. KARDEGIC [Concomitant]
     Active Substance: ASPIRIN DL-LYSINE
     Indication: Product used for unknown indication
  8. RITUXIMAB [Suspect]
     Active Substance: RITUXIMAB
     Indication: Splenic marginal zone lymphoma
     Route: 065
     Dates: start: 20230605, end: 20231023
  9. RITUXIMAB [Suspect]
     Active Substance: RITUXIMAB
     Indication: Splenic marginal zone lymphoma
     Route: 065
     Dates: start: 2007, end: 2020

REACTIONS (1)
  - Uveal melanoma [Not Recovered/Not Resolved]

NARRATIVE: CASE EVENT DATE: 20250523
